FAERS Safety Report 16880750 (Version 1)
Quarter: 2019Q4

REPORT INFORMATION
  Report Type: Spontaneous
  Country: US (occurrence: US)
  Receive Date: 20190807
  Receipt Date: 20190807
  Transmission Date: 20200122
  Serious: Yes (Life-Threatening, Hospitalization, Disabling, Other)
  Sender: FDA-Public Use
  Company Number: None

PATIENT
  Age: 52 Year
  Sex: Female
  Weight: 52.16 kg

DRUGS (10)
  1. VITAMIN D [Concomitant]
     Active Substance: VITAMIN D NOS
  2. NUTRAFOL [Concomitant]
  3. PROZAC [Suspect]
     Active Substance: FLUOXETINE HYDROCHLORIDE
     Indication: DEPRESSION
     Dates: start: 2001, end: 2018
  4. PROZAC [Suspect]
     Active Substance: FLUOXETINE HYDROCHLORIDE
     Indication: ANXIETY
     Dates: start: 2001, end: 2018
  5. DIAZEPAM. [Suspect]
     Active Substance: DIAZEPAM
  6. COLLAGEN [Concomitant]
     Active Substance: COLLAGEN
  7. LEXAPRO [Suspect]
     Active Substance: ESCITALOPRAM OXALATE
  8. METFORMIN [Concomitant]
     Active Substance: METFORMIN HYDROCHLORIDE
  9. PRISTIQ EXTENDED-RELEASE [Suspect]
     Active Substance: DESVENLAFAXINE SUCCINATE
  10. ABILIFY [Suspect]
     Active Substance: ARIPIPRAZOLE

REACTIONS (9)
  - Emotional distress [None]
  - Gun shot wound [None]
  - Fatigue [None]
  - Divorced [None]
  - Suicide attempt [None]
  - Injury [None]
  - Ill-defined disorder [None]
  - Suicidal ideation [None]
  - Amnesia [None]
